FAERS Safety Report 11394018 (Version 1)
Quarter: 2015Q3

REPORT INFORMATION
  Report Type: Spontaneous
  Country: KR (occurrence: None)
  Receive Date: 20150817
  Receipt Date: 20150817
  Transmission Date: 20151125
  Serious: Yes (Death, Hospitalization)
  Sender: FDA-Public Use
  Company Number: 2015PL000162

PATIENT
  Age: 62 Year
  Sex: Male

DRUGS (1)
  1. ALLOPURINOL (ALLOPURINOL) TABLET [Suspect]
     Active Substance: ALLOPURINOL
     Indication: HYPERURICAEMIA

REACTIONS (7)
  - Haemodialysis [None]
  - Drug reaction with eosinophilia and systemic symptoms [None]
  - Erythema multiforme [None]
  - Cerebral haemorrhage [None]
  - Toxic epidermal necrolysis [None]
  - Renal impairment [None]
  - Acute kidney injury [None]
